FAERS Safety Report 21039211 (Version 2)
Quarter: 2022Q3

REPORT INFORMATION
  Report Type: Spontaneous
  Country: CA (occurrence: CA)
  Receive Date: 20220704
  Receipt Date: 20220715
  Transmission Date: 20221027
  Serious: Yes (Other)
  Sender: FDA-Public Use
  Company Number: CA-MICRO LABS LIMITED-ML2022-03135

PATIENT
  Age: 75 Year
  Sex: Male

DRUGS (2)
  1. RANOLAZINE [Suspect]
     Active Substance: RANOLAZINE
     Route: 048
     Dates: start: 20220613, end: 20220617
  2. RANOLAZINE [Suspect]
     Active Substance: RANOLAZINE
     Dosage: DOSAGE WAS INCREASED BY PHYSICIAN (BASED ON TOLERANCE) TO 2 TABLETS OF 500 MG IN THE MORNING (AM) AN
     Route: 048

REACTIONS (5)
  - Angina pectoris [Unknown]
  - Fatigue [Recovered/Resolved]
  - Asthenia [Recovered/Resolved]
  - Hyperhidrosis [Unknown]
  - Dizziness [Unknown]
